FAERS Safety Report 4345284-3 (Version None)
Quarter: 2004Q2

REPORT INFORMATION
  Report Type: 
  Country: None (occurrence: None)
  Receive Date: 20040420
  Receipt Date: 20040412
  Transmission Date: 20050107
  Serious: Yes (Other)
  Sender: FDA-Public Use
  Company Number: 2004208778US

PATIENT
  Sex: 0

DRUGS (1)
  1. FLAGYL [Suspect]
     Indication: ANTIBACTERIAL PROPHYLAXIS

REACTIONS (1)
  - PANCREATITIS [None]
